FAERS Safety Report 17801523 (Version 15)
Quarter: 2025Q1

REPORT INFORMATION
  Report Type: Report from Study
  Country: CA (occurrence: CA)
  Receive Date: 20200519
  Receipt Date: 20250122
  Transmission Date: 20250408
  Serious: Yes (Hospitalization, Disabling, Other)
  Sender: NOVARTIS
  Company Number: NVSC2020CA060095

PATIENT
  Age: 54 Year
  Sex: Female

DRUGS (13)
  1. COSENTYX [Suspect]
     Active Substance: SECUKINUMAB
     Indication: Psoriatic arthropathy
     Dosage: 300 MG, QMO
     Route: 058
     Dates: start: 20200205
  2. COSENTYX [Suspect]
     Active Substance: SECUKINUMAB
     Dosage: 150 MG, QW
     Route: 058
     Dates: start: 20200226
  3. COSENTYX [Suspect]
     Active Substance: SECUKINUMAB
     Dosage: 300 MG, QMO
     Route: 058
  4. COSENTYX [Suspect]
     Active Substance: SECUKINUMAB
     Dosage: 300 MG, BIW
     Route: 058
  5. COSENTYX [Suspect]
     Active Substance: SECUKINUMAB
     Dosage: 300 MG, BIW
     Route: 058
     Dates: start: 20241113
  6. COSENTYX [Suspect]
     Active Substance: SECUKINUMAB
     Route: 058
  7. HUMIRA [Concomitant]
     Active Substance: ADALIMUMAB
     Indication: Product used for unknown indication
     Route: 065
  8. ENBREL [Concomitant]
     Active Substance: ETANERCEPT
     Indication: Product used for unknown indication
     Route: 065
  9. METHOTREXATE [Concomitant]
     Active Substance: METHOTREXATE
     Indication: Product used for unknown indication
     Route: 065
  10. PLAQUENIL [Concomitant]
     Active Substance: HYDROXYCHLOROQUINE SULFATE
     Indication: Product used for unknown indication
     Route: 065
  11. REMICADE [Concomitant]
     Active Substance: INFLIXIMAB
     Indication: Product used for unknown indication
     Route: 065
  12. OXYCODONE [Concomitant]
     Active Substance: OXYCODONE
     Indication: Product used for unknown indication
     Route: 065
  13. OXYCODONE HYDROCHLORIDE [Concomitant]
     Active Substance: OXYCODONE HYDROCHLORIDE
     Indication: Product used for unknown indication
     Route: 065

REACTIONS (19)
  - Gait inability [Unknown]
  - Back pain [Recovering/Resolving]
  - Pain [Unknown]
  - Neuralgia [Unknown]
  - Pain in extremity [Not Recovered/Not Resolved]
  - Neck pain [Recovering/Resolving]
  - Spinal pain [Recovering/Resolving]
  - Electric shock sensation [Unknown]
  - Pneumonia [Unknown]
  - Lung neoplasm malignant [Unknown]
  - Psoriatic arthropathy [Unknown]
  - SARS-CoV-2 test positive [Unknown]
  - Pulmonary mass [Unknown]
  - Haemoptysis [Unknown]
  - C-reactive protein increased [Recovered/Resolved]
  - Arthralgia [Unknown]
  - Infection [Unknown]
  - Psoriasis [Unknown]
  - Stress [Unknown]

NARRATIVE: CASE EVENT DATE: 20200201
